FAERS Safety Report 11886833 (Version 5)
Quarter: 2016Q2

REPORT INFORMATION
  Report Type: Report from Study
  Country: JP (occurrence: JP)
  Receive Date: 20160104
  Receipt Date: 20160526
  Transmission Date: 20160815
  Serious: Yes (Other)
  Sender: FDA-Public Use
  Company Number: JP-BRISTOL-MYERS SQUIBB COMPANY-BMS-2015-091921

PATIENT
  Age: 58 Year
  Sex: Male
  Weight: 80 kg

DRUGS (33)
  1. LIPITOR [Concomitant]
     Active Substance: ATORVASTATIN CALCIUM
     Indication: DYSLIPIDAEMIA
     Dosage: 10 MG, QD
     Route: 048
     Dates: start: 20140122
  2. TAKEPRON [Concomitant]
     Active Substance: LANSOPRAZOLE
     Indication: PROPHYLAXIS
     Dosage: 30 MG, QD
     Route: 048
  3. ZYLORIC [Concomitant]
     Active Substance: ALLOPURINOL
     Indication: HYPERURICAEMIA
     Dosage: 100 MG, QD
     Route: 048
     Dates: end: 20140415
  4. CELECOXIB. [Concomitant]
     Active Substance: CELECOXIB
     Indication: PERIARTHRITIS
     Dosage: 100 MG, QD
     Route: 048
     Dates: end: 20140522
  5. CELECOXIB. [Concomitant]
     Active Substance: CELECOXIB
     Indication: MYALGIA
     Dosage: 100 MG, QD
     Route: 048
     Dates: start: 20141017
  6. URALYT                             /01779901/ [Concomitant]
     Dosage: 4 TAB, QD
     Route: 048
     Dates: start: 20140416
  7. MYSLEE [Concomitant]
     Active Substance: ZOLPIDEM TARTRATE
     Indication: INSOMNIA
     Dosage: 10 MG, QD
     Route: 048
     Dates: start: 20141217
  8. BROTIZOLAM [Concomitant]
     Active Substance: BROTIZOLAM
     Indication: INSOMNIA
     Dosage: 0.5 MG, QD
     Route: 048
     Dates: end: 20140121
  9. POTOREND [Concomitant]
     Indication: HYPERURICAEMIA
     Dosage: 6 TAB, QD
     Route: 048
     Dates: end: 20140218
  10. ASPIRIN                            /00002701/ [Concomitant]
     Active Substance: ASPIRIN
     Indication: THROMBOSIS PROPHYLAXIS
     Dosage: 100 MG, QD
     Route: 048
  11. LANSOPRAZOLE. [Concomitant]
     Active Substance: LANSOPRAZOLE
     Indication: PROPHYLAXIS
     Dosage: 30 MG, QD
     Route: 048
     Dates: end: 20140121
  12. LENDORMIN [Concomitant]
     Active Substance: BROTIZOLAM
     Indication: INSOMNIA
     Dosage: 0.5 MG, QD
     Route: 048
     Dates: start: 20140122, end: 20141216
  13. FEBURIC [Concomitant]
     Active Substance: FEBUXOSTAT
     Indication: HYPERURICAEMIA
     Dosage: 20 MG, QD
     Route: 048
     Dates: start: 20140521
  14. ARTIST [Concomitant]
     Active Substance: CARVEDILOL
     Indication: ADVERSE EVENT
     Dosage: 5 MG, QD
     Route: 048
     Dates: end: 20140121
  15. TANATRIL [Concomitant]
     Active Substance: IMIDAPRIL
     Indication: ADVERSE EVENT
     Dosage: 2.5 MG, QD
     Route: 048
     Dates: end: 20140121
  16. DIART [Concomitant]
     Active Substance: AZOSEMIDE
     Indication: ADVERSE EVENT
     Dosage: 120 UNK, UNK
     Route: 048
     Dates: end: 20140111
  17. DIART [Concomitant]
     Active Substance: AZOSEMIDE
     Dosage: 30 MG, QD
     Route: 048
     Dates: start: 20140219
  18. TAMSULOSIN [Concomitant]
     Active Substance: TAMSULOSIN
     Indication: BENIGN PROSTATIC HYPERPLASIA
     Dosage: 0.2 MG, QD
     Route: 048
  19. URALYT                             /01779901/ [Concomitant]
     Indication: HYPERURICAEMIA
     Dosage: 4 TAB, QD
     Route: 048
     Dates: end: 20140415
  20. SELARA [Concomitant]
     Active Substance: EPLERENONE
     Indication: PRODUCT USED FOR UNKNOWN INDICATION
     Dosage: 25 MG, QD
     Route: 048
  21. ARTIST [Concomitant]
     Active Substance: CARVEDILOL
     Dosage: 10 MG, QD
     Route: 048
     Dates: start: 20140122, end: 20140128
  22. ARTIST [Concomitant]
     Active Substance: CARVEDILOL
     Dosage: 20 MG, QD
     Route: 048
     Dates: start: 20140129
  23. TANATRIL [Concomitant]
     Active Substance: IMIDAPRIL
     Dosage: 5 UNK, UNK
     Route: 048
     Dates: start: 20140122
  24. DIART [Concomitant]
     Active Substance: AZOSEMIDE
     Dosage: 60 MG, QD
     Route: 048
     Dates: start: 20140112, end: 20140218
  25. SAMSCA [Concomitant]
     Active Substance: TOLVAPTAN
     Indication: PRODUCT USED FOR UNKNOWN INDICATION
     Dosage: 7.5 MG, QD
     Route: 048
     Dates: start: 20140112, end: 20140506
  26. SAMSCA [Concomitant]
     Active Substance: TOLVAPTAN
     Dosage: 3.75 MG, QD
     Route: 048
     Dates: start: 20140507
  27. ATORVASTATIN [Concomitant]
     Active Substance: ATORVASTATIN
     Indication: DYSLIPIDAEMIA
     Dosage: 10 MG, QD
     Route: 048
     Dates: end: 20140121
  28. ALLOPURINOL. [Concomitant]
     Active Substance: ALLOPURINOL
     Indication: HYPERURICAEMIA
     Dosage: 200 MG, QD
     Route: 048
     Dates: end: 20140218
  29. VICTOZA [Concomitant]
     Active Substance: LIRAGLUTIDE
     Indication: DIABETES MELLITUS
     Dosage: 0.6 MG, QD
     Route: 048
  30. APIXABAN [Suspect]
     Active Substance: APIXABAN
     Indication: THROMBOSIS PROPHYLAXIS
     Dosage: 5 MG, BID
     Route: 048
     Dates: start: 20140115
  31. ARTIST [Concomitant]
     Active Substance: CARVEDILOL
     Dosage: 40 MG, QD
     Route: 048
     Dates: end: 20140304
  32. FLUITRAN [Concomitant]
     Active Substance: TRICHLORMETHIAZIDE
     Indication: ADVERSE EVENT
     Dosage: 0.5 MG, QD
     Route: 048
     Dates: end: 20140121
  33. ZYLORIC [Concomitant]
     Active Substance: ALLOPURINOL
     Dosage: 100 MG, QD
     Route: 048
     Dates: start: 20140416, end: 20140520

REACTIONS (4)
  - Diarrhoea [Recovered/Resolved]
  - Myalgia [Recovering/Resolving]
  - Periarthritis [Recovering/Resolving]
  - Loss of consciousness [Recovered/Resolved]

NARRATIVE: CASE EVENT DATE: 20140123
